FAERS Safety Report 9710650 (Version 2)
Quarter: 2014Q2

REPORT INFORMATION
  Report Type: Spontaneous
  Country: US (occurrence: US)
  Receive Date: 20131126
  Receipt Date: 20140510
  Transmission Date: 20141212
  Serious: No
  Sender: FDA-Public Use
  Company Number: US-BRISTOL-MYERS SQUIBB COMPANY-19002039

PATIENT
  Age: 59 Year
  Sex: Male
  Weight: 129.25 kg

DRUGS (6)
  1. BYDUREON  2MG SUSPENSION [Suspect]
     Indication: TYPE 2 DIABETES MELLITUS
     Route: 058
     Dates: start: 201305
  2. LANTUS [Concomitant]
  3. METFORMIN [Concomitant]
  4. LISINOPRIL [Concomitant]
  5. BENICAR [Concomitant]
  6. NEXIUM [Concomitant]

REACTIONS (2)
  - Injection site mass [Recovering/Resolving]
  - Weight decreased [Recovering/Resolving]
